FAERS Safety Report 24312942 (Version 1)
Quarter: 2024Q3

REPORT INFORMATION
  Report Type: Spontaneous
  Country: US (occurrence: US)
  Receive Date: 20240912
  Receipt Date: 20240912
  Transmission Date: 20241017
  Serious: No
  Sender: ABBVIE
  Company Number: US-ABBVIE-5907101

PATIENT
  Age: 16 Year
  Sex: Female

DRUGS (1)
  1. HUMIRA [Suspect]
     Active Substance: ADALIMUMAB
     Indication: Crohn^s disease
     Route: 058

REACTIONS (2)
  - Injection site haemorrhage [Unknown]
  - Device use error [Not Recovered/Not Resolved]

NARRATIVE: CASE EVENT DATE: 20240830
